FAERS Safety Report 9559893 (Version 2)
Quarter: 2013Q4

REPORT INFORMATION
  Report Type: Spontaneous
  Country: US (occurrence: US)
  Receive Date: 20130927
  Receipt Date: 20131108
  Transmission Date: 20140711
  Serious: No
  Sender: FDA-Public Use
  Company Number: US-PFIZER INC-2013277163

PATIENT
  Age: 19 Year
  Sex: Female
  Weight: 61.68 kg

DRUGS (4)
  1. ZOLOFT [Suspect]
     Indication: DEPRESSION
     Dosage: 100 MG, 1X/DAY (IN THE MORNING)
     Route: 048
  2. ZOLOFT [Suspect]
     Indication: ANXIETY
  3. VALIUM [Suspect]
     Dosage: UNK
  4. ACYCLOVIR [Concomitant]
     Dosage: UNK; 2X/DAY (AM AND PM)

REACTIONS (1)
  - Drug screen false positive [Unknown]
